FAERS Safety Report 8621440-0 (Version None)
Quarter: 2012Q3

REPORT INFORMATION
  Report Type: 
  Country: None (occurrence: None)
  Receive Date: 20120824
  Receipt Date: 20120815
  Transmission Date: 20120928
  Serious: Yes (Other)
  Sender: FDA-Public Use
  Company Number: US-ASTRAZENECA-2010SE43137

PATIENT
  Age: 82 Year
  Sex: Female
  Weight: 76.2 kg

DRUGS (5)
  1. CRESTOR [Suspect]
     Route: 048
  2. ARIMIDEX [Suspect]
     Route: 048
  3. TAMOXIFEN CITRATE [Suspect]
     Route: 048
  4. NEBULIZER [Concomitant]
  5. BROVANA [Concomitant]

REACTIONS (5)
  - LUNG NEOPLASM MALIGNANT [None]
  - CHRONIC OBSTRUCTIVE PULMONARY DISEASE [None]
  - NEOPLASM MALIGNANT [None]
  - BREAST CANCER RECURRENT [None]
  - HEPATOMEGALY [None]
